FAERS Safety Report 10857571 (Version 1)
Quarter: 2015Q1

REPORT INFORMATION
  Report Type: Spontaneous
  Country: US (occurrence: US)
  Receive Date: 20150223
  Receipt Date: 20150223
  Transmission Date: 20150721
  Serious: Yes (Hospitalization)
  Sender: FDA-Public Use
  Company Number: US-UNITED THERAPEUTICS-UNT-2014-012693

PATIENT
  Age: 53 Year
  Sex: Female
  Weight: 54.42 kg

DRUGS (2)
  1. REMODULIN [Suspect]
     Active Substance: TREPROSTINIL
     Indication: PULMONARY HYPERTENSION
     Dosage: 0.0635 ?G/KG/MIN, CONTINUING
     Route: 058
     Dates: start: 20130403
  2. REMODULIN [Suspect]
     Active Substance: TREPROSTINIL
     Dosage: 0.0635 ?G/KG/MIN, CONTINUING
     Route: 058

REACTIONS (6)
  - Cardiac failure congestive [Unknown]
  - Malabsorption from injection site [Unknown]
  - Scar [Unknown]
  - Unevaluable event [Unknown]
  - Inflammation [Not Recovered/Not Resolved]
  - Pneumonia [Unknown]

NARRATIVE: CASE EVENT DATE: 201412
